FAERS Safety Report 4960180-6 (Version None)
Quarter: 2006Q1

REPORT INFORMATION
  Report Type: 
  Country: None (occurrence: None)
  Receive Date: 20060331
  Receipt Date: 20050729
  Transmission Date: 20060701
  Serious: Yes (Life-Threatening, Hospitalization, Other)
  Sender: FDA-Public Use
  Company Number: DE-ABBOTT-05P-062-0307280-00

PATIENT
  Sex: Male
  Weight: 70 kg

DRUGS (25)
  1. HUMIRA [Suspect]
     Indication: RHEUMATOID ARTHRITIS
     Route: 058
     Dates: start: 20040106, end: 20050627
  2. HUMIRA [Suspect]
     Route: 058
  3. METHOTREXATE SODIUM [Suspect]
     Indication: RHEUMATOID ARTHRITIS
     Route: 058
     Dates: start: 20050418, end: 20050627
  4. METHOTREXATE SODIUM [Suspect]
     Route: 058
  5. COX2-INHIBITOR [Concomitant]
     Indication: RHEUMATOID ARTHRITIS
     Route: 048
  6. CORTICOIDS [Concomitant]
     Indication: RHEUMATOID ARTHRITIS
     Route: 048
  7. DURAGESIC-100 [Concomitant]
     Indication: RHEUMATOID ARTHRITIS
     Dosage: 1 PLASTER
     Route: 062
  8. FRAGMIN P FORTE [Concomitant]
     Indication: THROMBOSIS PROPHYLAXIS
     Route: 058
  9. EMBOLEX [Concomitant]
     Indication: DRUG USE FOR UNKNOWN INDICATION
     Route: 058
  10. CIPROFLOXACIN HYDROCHLORIDE [Concomitant]
     Indication: DRUG USE FOR UNKNOWN INDICATION
     Route: 048
  11. MORPHINE SULFATE [Concomitant]
     Indication: DRUG USE FOR UNKNOWN INDICATION
  12. MCP [Concomitant]
     Indication: DRUG USE FOR UNKNOWN INDICATION
  13. BIFITERAL [Concomitant]
     Indication: DRUG USE FOR UNKNOWN INDICATION
     Dosage: TABLESPOON
  14. ACETYLCYSTEINE [Concomitant]
     Indication: DRUG USE FOR UNKNOWN INDICATION
  15. FLUCONAZOLE [Concomitant]
     Indication: DRUG USE FOR UNKNOWN INDICATION
  16. PREDNISOLONE [Concomitant]
     Indication: DRUG USE FOR UNKNOWN INDICATION
  17. ENALAPRIL MALEATE [Concomitant]
     Indication: DRUG USE FOR UNKNOWN INDICATION
  18. SPIRONOLACTONE [Concomitant]
     Indication: DRUG USE FOR UNKNOWN INDICATION
  19. PANTOPRAZOLE SODIUM [Concomitant]
     Indication: DRUG USE FOR UNKNOWN INDICATION
  20. TAMSULOSIN HYDROCHLORIDE [Concomitant]
     Indication: DRUG USE FOR UNKNOWN INDICATION
  21. LEVOFLOXACIN [Concomitant]
     Indication: DRUG USE FOR UNKNOWN INDICATION
  22. ESOMEPRAZOLE [Concomitant]
     Indication: DRUG USE FOR UNKNOWN INDICATION
  23. NOVAMINSULFONE [Concomitant]
     Indication: DRUG USE FOR UNKNOWN INDICATION
  24. TICLOPIDINE HCL [Concomitant]
     Indication: DRUG USE FOR UNKNOWN INDICATION
  25. DYNORM PLUS [Concomitant]
     Indication: DRUG USE FOR UNKNOWN INDICATION

REACTIONS (14)
  - ARTHRALGIA [None]
  - ATRIAL FIBRILLATION [None]
  - CLOSTRIDIAL INFECTION [None]
  - GAS GANGRENE [None]
  - GENERAL PHYSICAL HEALTH DETERIORATION [None]
  - GENERALISED OEDEMA [None]
  - HAEMORRHAGE [None]
  - JOINT STIFFNESS [None]
  - JOINT SWELLING [None]
  - KNEE ARTHROPLASTY [None]
  - PLEURAL EFFUSION [None]
  - PNEUMONIA [None]
  - PULMONARY CONGESTION [None]
  - RESPIRATORY FAILURE [None]
